FAERS Safety Report 8816054 (Version 1)
Quarter: 2012Q4

REPORT INFORMATION
  Report Type: 
  Country: CN (occurrence: CN)
  Receive Date: 20120928
  Receipt Date: 20120928
  Transmission Date: 20130627
  Serious: Yes (Death)
  Sender: FDA-Public Use
  Company Number: CN-COVIDIEN/TYCO HEALTHCARE/MALLINCKRODT-T201203488

PATIENT
  Age: 30 Year
  Sex: Male

DRUGS (2)
  1. SODIUM IODIDE (I 131) [Suspect]
     Indication: BASEDOW^S DISEASE
     Dosage: 148 MBq, single
     Route: 065
  2. PROPRANOLOL [Concomitant]
     Dosage: 10 mg, tid

REACTIONS (2)
  - Thyrotoxic periodic paralysis [Fatal]
  - Cardiac arrest [Fatal]
